FAERS Safety Report 9874363 (Version 2)
Quarter: 2014Q1

REPORT INFORMATION
  Report Type: Spontaneous
  Country: US (occurrence: US)
  Receive Date: 20140206
  Receipt Date: 20140206
  Transmission Date: 20141002
  Serious: No
  Sender: FDA-Public Use
  Company Number: US-ACORDA-ACO_31518_2012

PATIENT
  Age: 55 Year
  Sex: Female

DRUGS (5)
  1. AMPYRA [Suspect]
     Indication: MULTIPLE SCLEROSIS
     Dosage: 10 MG, BID
     Dates: end: 20120724
  2. AMPYRA [Suspect]
     Dosage: 10MG,BID
     Route: 048
     Dates: start: 201208
  3. IMURAN [Suspect]
     Indication: SJOGREN^S SYNDROME
     Dosage: 100 MG, BID
     Route: 048
     Dates: start: 201205
  4. METHOTREXATE [Suspect]
     Indication: SJOGREN^S SYNDROME
     Dosage: 15 MG, WEEKLY
     Route: 030
     Dates: start: 201207
  5. DOXYCYCLINE HYCLATE [Concomitant]
     Indication: PRODUCT USED FOR UNKNOWN INDICATION
     Dosage: 100MG,UNK
     Route: 065
     Dates: start: 20120808

REACTIONS (2)
  - Nephrolithiasis [Not Recovered/Not Resolved]
  - Urinary tract infection [Not Recovered/Not Resolved]
